FAERS Safety Report 8429251 (Version 2)
Quarter: 2012Q4

REPORT INFORMATION
  Report Type: 
  Country: DE (occurrence: DE)
  Receive Date: 20120227
  Receipt Date: 20121030
  Transmission Date: 20130627
  Serious: Yes (Death, Other)
  Sender: FDA-Public Use
  Company Number: DE-ROCHE-1043044

PATIENT
  Age: 71 Year
  Sex: Female

DRUGS (1)
  1. BONDRONAT [Suspect]
     Indication: METASTASES TO BONE
     Route: 042

REACTIONS (3)
  - Anaemia [Not Recovered/Not Resolved]
  - Thrombocytopenia [Not Recovered/Not Resolved]
  - Metastases to bone marrow [Fatal]
